FAERS Safety Report 10608047 (Version 3)
Quarter: 2015Q1

REPORT INFORMATION
  Report Type: Spontaneous
  Country: US (occurrence: US)
  Receive Date: 20141125
  Receipt Date: 20150304
  Transmission Date: 20150720
  Serious: No
  Sender: FDA-Public Use
  Company Number: US-PFIZER INC-2014322462

PATIENT
  Age: 33 Year
  Sex: Female
  Weight: 66 kg

DRUGS (13)
  1. SOMA [Concomitant]
     Active Substance: CARISOPRODOL
     Indication: BACK PAIN
     Dosage: 250 MG, 3X/DAY (250 MG TABLET 1 TABLET THREE TIMES A DAY PRN)
  2. IBUPROFEN. [Concomitant]
     Active Substance: IBUPROFEN
     Dosage: UNK, DAILY (800 MG TABLET 1 TWICE DAILY PRN)
  3. AMBIEN [Concomitant]
     Active Substance: ZOLPIDEM TARTRATE
     Indication: SLEEP DISORDER
     Dosage: 10 MG, 1X/DAY
  4. NORCO [Concomitant]
     Active Substance: ACETAMINOPHEN\HYDROCODONE BITARTRATE
     Dosage: UNK, 3X/DAY (HYDROCODONE BITARTRATE-10 MG, PARACETAMOL-325 MG , PRN)
  5. FLECTOR [Concomitant]
     Active Substance: DICLOFENAC EPOLAMINE
     Dosage: UNK, 2X/DAY (1.3 % TRANSDERMAL 12 HOUR PATCH 1 TWICE A DAY PRN)
     Route: 062
  6. LUNESTA [Concomitant]
     Active Substance: ESZOPICLONE
     Dosage: 2 MG, AS NEEDED (2 MG TABLET 1 AS NEEDED PRN)
  7. AMBIEN [Concomitant]
     Active Substance: ZOLPIDEM TARTRATE
     Dosage: UNK, AS NEEDED (10 MG TABLET 1 TABLET EVERY EVENING PRN)
  8. FENTANYL. [Concomitant]
     Active Substance: FENTANYL
     Indication: PAIN
     Dosage: 25 MG,1 CAPS EVERY 72 HOURS
  9. PERCOCET [Concomitant]
     Active Substance: ACETAMINOPHEN\OXYCODONE HYDROCHLORIDE
     Dosage: UNK, EVERY 4 HRS (OXYCODONE HYDROCHLORIDE-10MG, PARACETAMOL325MG TABLET 1 EVERY 4 HOURS PRN)
  10. DILAUDID [Concomitant]
     Active Substance: HYDROMORPHONE HYDROCHLORIDE
     Dosage: 2 MG, 1X/DAY
  11. FENTANYL. [Concomitant]
     Active Substance: FENTANYL
     Indication: PAIN
     Dosage: 1 DF, UNK (
  12. LYRICA [Suspect]
     Active Substance: PREGABALIN
     Indication: NEURALGIA
     Dosage: SINCE 2007 OR 2008 AT TOT 200MG DAILY
     Dates: end: 20141110
  13. FLEXERIL [Concomitant]
     Active Substance: CYCLOBENZAPRINE HYDROCHLORIDE
     Dosage: 10 MG, AS NEEDED (10 MG TABLET 1 TAB AT BEDTIME PRN)

REACTIONS (8)
  - Paraesthesia oral [Unknown]
  - Pruritus [Unknown]
  - Back pain [Unknown]
  - Rash papular [Not Recovered/Not Resolved]
  - Rash generalised [Not Recovered/Not Resolved]
  - Urticaria [Not Recovered/Not Resolved]
  - Hypoaesthesia oral [Unknown]
  - Insomnia [Unknown]

NARRATIVE: CASE EVENT DATE: 20141110
